FAERS Safety Report 22083979 (Version 1)
Quarter: 2023Q1

REPORT INFORMATION
  Report Type: Spontaneous
  Country: EG (occurrence: EG)
  Receive Date: 20230310
  Receipt Date: 20230310
  Transmission Date: 20230418
  Serious: Yes (Death, Life-Threatening, Hospitalization)
  Sender: FDA-Public Use
  Company Number: EG-PFIZER INC-PV202300044065

PATIENT
  Age: 13 Year
  Sex: Female
  Weight: 40 kg

DRUGS (3)
  1. VFEND [Suspect]
     Active Substance: VORICONAZOLE
     Indication: Antifungal treatment
     Dosage: 200 MG, 2X/DAY
     Route: 048
     Dates: start: 2022
  2. METHOTREXATE (METHOTREXATE SODIUM) [Suspect]
     Active Substance: METHOTREXATE SODIUM
     Indication: Acute lymphocytic leukaemia
     Dosage: 650 MG, OVER 2 HOURS
     Route: 042
     Dates: start: 20220717
  3. LEVOFLOXACIN [Suspect]
     Active Substance: LEVOFLOXACIN
     Dosage: 375 MG, DAILY
     Route: 048
     Dates: start: 20220719, end: 20220720

REACTIONS (10)
  - Abdominal pain [Fatal]
  - Rash [Fatal]
  - Oropharyngeal pain [Fatal]
  - Vomiting [Fatal]
  - Diarrhoea [Fatal]
  - Rectal haemorrhage [Fatal]
  - Discoloured vomit [Fatal]
  - Face oedema [Fatal]
  - Stomatitis [Fatal]
  - Haematochezia [Fatal]

NARRATIVE: CASE EVENT DATE: 20220719
